FAERS Safety Report 9393065 (Version 1)
Quarter: 2013Q3

REPORT INFORMATION
  Report Type: Report from Study
  Country: US (occurrence: US)
  Receive Date: 20130710
  Receipt Date: 20130710
  Transmission Date: 20140515
  Serious: Yes (Other)
  Sender: FDA-Public Use
  Company Number: US-SANOFI-AVENTIS-2013SA069162

PATIENT
  Age: 34 Year
  Sex: Female

DRUGS (1)
  1. AUBAGIO [Suspect]
     Indication: MULTIPLE SCLEROSIS
     Route: 048
     Dates: start: 201211

REACTIONS (2)
  - Central nervous system lesion [Not Recovered/Not Resolved]
  - Hypoaesthesia [Not Recovered/Not Resolved]
